FAERS Safety Report 10414370 (Version 2)
Quarter: 2014Q3

REPORT INFORMATION
  Report Type: Spontaneous
  Country: US (occurrence: US)
  Receive Date: 20140828
  Receipt Date: 20140828
  Transmission Date: 20150326
  Serious: Yes (Other)
  Sender: FDA-Public Use
  Company Number: US-ACCORD-025572

PATIENT
  Age: 48 Year
  Sex: Female

DRUGS (1)
  1. QUETIAPINE [Suspect]
     Active Substance: QUETIAPINE
     Indication: PRODUCT USED FOR UNKNOWN INDICATION
     Dosage: STARTED ON QUETIAPINE AND QUICKLY TITRATED UP TO 100 MG BEFORE BEDTIME FOR 3 DAYS.

REACTIONS (1)
  - Sleep-related eating disorder [Recovered/Resolved]
